FAERS Safety Report 9350008 (Version 2)
Quarter: 2013Q3

REPORT INFORMATION
  Report Type: Spontaneous
  Country: JP (occurrence: JP)
  Receive Date: 20130614
  Receipt Date: 20130701
  Transmission Date: 20140515
  Serious: Yes (Death, Life-Threatening)
  Sender: FDA-Public Use
  Company Number: JP-B.I. PHARMACEUTICALS,INC./RIDGEFIELD-2013-BI-17015NB

PATIENT
  Age: 87 Year
  Sex: Male
  Weight: 48 kg

DRUGS (9)
  1. PRADAXA [Suspect]
     Indication: ATRIAL FIBRILLATION
     Dosage: 300 MG
     Route: 048
     Dates: start: 20130607, end: 20130612
  2. MAINTOWA [Concomitant]
     Indication: HYPERTENSION
     Dosage: 2.5 MG
     Route: 048
     Dates: start: 20041104, end: 20130612
  3. NU-LOTAN [Concomitant]
     Indication: HYPERTENSION
     Dosage: 50 MG
     Route: 048
     Dates: start: 20041111, end: 20130612
  4. LIPOBLOCK [Concomitant]
     Indication: HYPERLIPIDAEMIA
     Dosage: 5 MG
     Route: 048
     Dates: start: 20050915, end: 20130612
  5. TOWARAT-CR [Concomitant]
     Indication: HYPERLIPIDAEMIA
     Dosage: 40 MG
     Route: 048
     Dates: start: 20050721, end: 20130612
  6. LANIRAPID [Concomitant]
     Indication: SINUS TACHYCARDIA
     Dosage: 0.1 MG
     Route: 048
     Dates: start: 20050915, end: 20130612
  7. ADALAT-CR [Concomitant]
     Indication: PALPITATIONS
     Dosage: 20 MG
     Route: 048
     Dates: start: 20050819, end: 20130612
  8. MAINTATE [Concomitant]
     Indication: HYPERTENSION
     Dosage: 5 MG
     Route: 048
     Dates: start: 200401
  9. LIVALO [Concomitant]
     Dosage: 1 MG
     Route: 048
     Dates: start: 20050401, end: 20130112

REACTIONS (2)
  - Shock haemorrhagic [Fatal]
  - Upper gastrointestinal haemorrhage [Fatal]
